FAERS Safety Report 4650135-3 (Version None)
Quarter: 2005Q2

REPORT INFORMATION
  Report Type: 
  Country: None (occurrence: None)
  Receive Date: 20050502
  Receipt Date: 20050427
  Transmission Date: 20051028
  Serious: Yes (Hospitalization)
  Sender: FDA-Public Use
  Company Number: JP-BRISTOL-MYERS SQUIBB COMPANY-12949244

PATIENT
  Sex: Male

DRUGS (4)
  1. BRIPLATIN [Suspect]
     Indication: BLADDER CANCER
     Route: 042
  2. METHOTREXATE [Concomitant]
     Route: 042
  3. VINBLASTINE SULFATE [Concomitant]
     Route: 042
  4. FARMORUBICIN [Concomitant]
     Route: 042

REACTIONS (1)
  - RECTAL HAEMORRHAGE [None]
